FAERS Safety Report 24679391 (Version 2)
Quarter: 2025Q3

REPORT INFORMATION
  Report Type: Report from Study
  Country: US (occurrence: US)
  Receive Date: 20241129
  Receipt Date: 20250810
  Transmission Date: 20251020
  Serious: Yes (Other)
  Sender: ALEXION PHARMACEUTICALS
  Company Number: US-AstraZeneca-CH-00753456A

PATIENT
  Sex: Male

DRUGS (1)
  1. OSIMERTINIB [Suspect]
     Active Substance: OSIMERTINIB
     Dosage: 80 MILLIGRAM, QD
     Route: 065

REACTIONS (6)
  - Haematochezia [Unknown]
  - Eye pruritus [Unknown]
  - Sensitive skin [Unknown]
  - Platelet count decreased [Unknown]
  - Pruritus [Unknown]
  - Erythema [Unknown]
